FAERS Safety Report 11593564 (Version 3)
Quarter: 2016Q1

REPORT INFORMATION
  Report Type: Spontaneous
  Country: US (occurrence: US)
  Receive Date: 20151005
  Receipt Date: 20160307
  Transmission Date: 20160525
  Serious: Yes (Other)
  Sender: FDA-Public Use
  Company Number: US-DEP_12771_2015

PATIENT
  Age: 58 Year
  Sex: Female
  Weight: 108 kg

DRUGS (8)
  1. GRALISE [Suspect]
     Active Substance: GABAPENTIN
     Indication: OFF LABEL USE
     Dosage: STARTER PACK, TITRATED UP TO 1200MG ONCE DAILY WITH EVENING MEALS
     Route: 048
     Dates: start: 20150917, end: 20150923
  2. AMLODIPINE BESYLATE. [Concomitant]
     Active Substance: AMLODIPINE BESYLATE
     Route: 048
  3. HCTZ [Concomitant]
     Active Substance: HYDROCHLOROTHIAZIDE
     Indication: BLOOD PRESSURE ABNORMAL
     Route: 048
     Dates: start: 2005
  4. TOPROL XL [Concomitant]
     Active Substance: METOPROLOL SUCCINATE
     Indication: HYPERTENSION
     Route: 048
     Dates: start: 2005
  5. GRALISE [Suspect]
     Active Substance: GABAPENTIN
     Indication: HEADACHE
     Dosage: STARTER PACK, TITRATED UP TO 1200MG ONCE DAILY WITH EVENING MEALS
     Route: 048
     Dates: start: 20150917, end: 20150923
  6. TOPROL XL [Concomitant]
     Active Substance: METOPROLOL SUCCINATE
     Route: 048
     Dates: start: 2005
  7. LOW DOSE ASPIRIN [Concomitant]
     Active Substance: ASPIRIN
     Indication: PROPHYLAXIS
     Route: 048
  8. GRALISE [Suspect]
     Active Substance: GABAPENTIN
     Indication: FACIAL PAIN
     Dosage: STARTER PACK, TITRATED UP TO 1200MG ONCE DAILY WITH EVENING MEALS
     Route: 048
     Dates: start: 20150917, end: 20150923

REACTIONS (6)
  - Suicidal ideation [Recovering/Resolving]
  - Dizziness [Recovered/Resolved]
  - Depression [Recovering/Resolving]
  - Vision blurred [Recovered/Resolved]
  - Diplopia [Recovered/Resolved]
  - Drug titration error [Recovered/Resolved]

NARRATIVE: CASE EVENT DATE: 20150920
